FAERS Safety Report 5158295-5 (Version None)
Quarter: 2006Q4

REPORT INFORMATION
  Report Type: 
  Country: None (occurrence: None)
  Receive Date: 20061128
  Receipt Date: 20061124
  Transmission Date: 20070319
  Serious: Yes (Death)
  Sender: FDA-Public Use
  Company Number: PHBS2006TW18238

PATIENT
  Age: 59 Year
  Sex: Male

DRUGS (2)
  1. CO-DIOVAN [Suspect]
     Indication: HYPERTENSION
     Dosage: UNK, UNK
     Route: 048
     Dates: start: 20061025, end: 20061028
  2. ANTIDIABETICS [Concomitant]
     Indication: DIABETES MELLITUS

REACTIONS (2)
  - CHOKING [None]
  - DYSPNOEA [None]
